FAERS Safety Report 5266592-8 (Version None)
Quarter: 2007Q1

REPORT INFORMATION
  Report Type: 
  Country: None (occurrence: None)
  Receive Date: 20070315
  Receipt Date: 20070305
  Transmission Date: 20070707
  Serious: No
  Sender: FDA-Public Use
  Company Number: JP-PFIZER INC-2007010594

PATIENT
  Sex: Female

DRUGS (3)
  1. DALACIN S [Suspect]
     Dosage: DAILY DOSE:600MG
     Dates: start: 20070201, end: 20070205
  2. EPINASTINE HYDROCHLORIDE [Suspect]
     Route: 048
  3. METHERGINE [Concomitant]
     Dates: start: 20070101, end: 20070202

REACTIONS (1)
  - NO ADVERSE EFFECT [None]
